FAERS Safety Report 17194837 (Version 3)
Quarter: 2020Q1

REPORT INFORMATION
  Report Type: Spontaneous
  Country: TW (occurrence: TW)
  Receive Date: 20191224
  Receipt Date: 20200128
  Transmission Date: 20200409
  Serious: Yes (Hospitalization, Other)
  Sender: FDA-Public Use
  Company Number: TW-BRISTOL-MYERS SQUIBB COMPANY-BMS-2019-111183

PATIENT
  Age: 78 Year
  Sex: Female
  Weight: 54 kg

DRUGS (1)
  1. OPDIVO [Suspect]
     Active Substance: NIVOLUMAB
     Indication: HEPATIC CANCER
     Dosage: 3 MILLIGRAM/KILOGRAM, Q2WK
     Route: 041
     Dates: start: 20190624

REACTIONS (5)
  - Jaundice [Not Recovered/Not Resolved]
  - Autoimmune hepatitis [Unknown]
  - Bile duct obstruction [Not Recovered/Not Resolved]
  - Malignant neoplasm progression [Unknown]
  - Biliary tract infection [Unknown]

NARRATIVE: CASE EVENT DATE: 20191113
